FAERS Safety Report 8405379-1 (Version None)
Quarter: 2012Q2

REPORT INFORMATION
  Report Type: 
  Country: None (occurrence: None)
  Receive Date: 20120604
  Receipt Date: 20120528
  Transmission Date: 20120825
  Serious: Yes (Other)
  Sender: FDA-Public Use
  Company Number: IT-AMGEN-ITASP2012033601

PATIENT
  Age: 58 Year
  Sex: Male

DRUGS (2)
  1. ESOPRAL                            /01479302/ [Concomitant]
     Dosage: UNK
  2. ENBREL [Suspect]
     Indication: PSORIATIC ARTHROPATHY
     Dosage: 50 MG, WEEKLY
     Route: 058
     Dates: start: 20070501, end: 20120510

REACTIONS (1)
  - PARKINSON'S DISEASE [None]
